FAERS Safety Report 9384938 (Version 1)
Quarter: 2013Q3

REPORT INFORMATION
  Report Type: Spontaneous
  Country: CH (occurrence: CH)
  Receive Date: 20130705
  Receipt Date: 20130705
  Transmission Date: 20140515
  Serious: Yes (Other)
  Sender: FDA-Public Use
  Company Number: CH-009507513-1306CHE014409

PATIENT
  Age: 62 Year
  Sex: Female
  Weight: 73 kg

DRUGS (6)
  1. JANUVIA [Suspect]
     Indication: DIABETES MELLITUS
     Dosage: 100 MG, QD
     Route: 048
     Dates: start: 20121008, end: 20130418
  2. ASPIRIN CARDIO [Concomitant]
     Dosage: 100 MG, QD
     Route: 048
  3. CRESTOR [Concomitant]
     Indication: DYSLIPIDAEMIA
     Dosage: 10 MG, QD
     Route: 048
  4. LEVEMIR [Concomitant]
     Indication: DIABETES MELLITUS
     Dosage: 16E ONCE DAILY
     Route: 058
  5. GLICLAZIDE [Concomitant]
     Indication: DIABETES MELLITUS
     Dosage: 30 MG, QD
     Route: 048
  6. BILOL [Concomitant]

REACTIONS (1)
  - Lipase increased [Recovered/Resolved]
